FAERS Safety Report 4692520-X (Version None)
Quarter: 2005Q2

REPORT INFORMATION
  Report Type: 
  Country: None (occurrence: None)
  Receive Date: 20050613
  Receipt Date: 20050407
  Transmission Date: 20051028
  Serious: No
  Sender: FDA-Public Use
  Company Number: 2005-00751

PATIENT
  Age: 69 Year
  Sex: Female
  Weight: 90.7 kg

DRUGS (4)
  1. VELCADE [Suspect]
     Indication: MULTIPLE MYELOMA
     Dates: end: 20050301
  2. ZOLOFT [Concomitant]
  3. PREVACID [Concomitant]
  4. PREMARIN [Concomitant]

REACTIONS (1)
  - FATIGUE [None]
